FAERS Safety Report 19626113 (Version 2)
Quarter: 2022Q2

REPORT INFORMATION
  Report Type: Other
  Country: US (occurrence: None)
  Receive Date: 20210729
  Receipt Date: 20220630
  Transmission Date: 20220721
  Serious: Yes (Other)
  Sender: FDA-Public Use
  Company Number: US-ROCHE-2695959

PATIENT
  Sex: Female
  Weight: 60.836 kg

DRUGS (1)
  1. OCREVUS [Suspect]
     Active Substance: OCRELIZUMAB
     Indication: Relapsing-remitting multiple sclerosis
     Route: 065
     Dates: start: 201803, end: 202003

REACTIONS (4)
  - Pre-eclampsia [Unknown]
  - Mastitis [Unknown]
  - CD19 lymphocyte count abnormal [Unknown]
  - Maternal exposure before pregnancy [Unknown]
